FAERS Safety Report 16441075 (Version 1)
Quarter: 2019Q2

REPORT INFORMATION
  Report Type: Report from Study
  Country: IT (occurrence: IT)
  Receive Date: 20190617
  Receipt Date: 20190617
  Transmission Date: 20190711
  Serious: Yes (Other)
  Sender: FDA-Public Use
  Company Number: IT-TEVA-2019-IT-1063368

PATIENT
  Age: 19 Year
  Sex: Female

DRUGS (3)
  1. DILTIAZEM DOC GENERICI 60 MG COMPRESSE [Suspect]
     Active Substance: DILTIAZEM
     Indication: SUICIDE ATTEMPT
     Dosage: 12 DOSAGE FORMS
     Route: 048
     Dates: start: 20190529, end: 20190529
  2. CORTISONE [Suspect]
     Active Substance: CORTISONE\HYDROCORTISONE
     Indication: SUICIDE ATTEMPT
     Route: 048
     Dates: start: 20190529, end: 20190529
  3. PANTOPRAZOLE [Suspect]
     Active Substance: PANTOPRAZOLE
     Indication: SUICIDE ATTEMPT
     Route: 048
     Dates: start: 20190529, end: 20190529

REACTIONS (2)
  - Apraxia [Recovering/Resolving]
  - Intentional overdose [Recovering/Resolving]

NARRATIVE: CASE EVENT DATE: 20190529
